FAERS Safety Report 24903279 (Version 1)
Quarter: 2025Q1

REPORT INFORMATION
  Report Type: Spontaneous
  Country: FR (occurrence: FR)
  Receive Date: 20250130
  Receipt Date: 20250130
  Transmission Date: 20250408
  Serious: Yes (Other)
  Sender: LEO PHARM
  Company Number: None

PATIENT
  Age: 46 Year
  Sex: Male
  Weight: 86 kg

DRUGS (2)
  1. ADBRY [Suspect]
     Active Substance: TRALOKINUMAB-LDRM
     Indication: Dermatitis atopic
     Route: 058
     Dates: start: 20230915
  2. ADBRY [Suspect]
     Active Substance: TRALOKINUMAB-LDRM
     Indication: Dermatitis atopic
     Dosage: 150 MG, SOLUTION FOR INJECTION IN A PRE-FILLED SYRINGE
     Route: 058
     Dates: end: 20240708

REACTIONS (1)
  - Sunburn [Recovered/Resolved]

NARRATIVE: CASE EVENT DATE: 20240112
